FAERS Safety Report 15588481 (Version 2)
Quarter: 2018Q4

REPORT INFORMATION
  Report Type: Report from Study
  Country: None (occurrence: AR)
  Receive Date: 20181105
  Receipt Date: 20181109
  Transmission Date: 20190205
  Serious: Yes (Hospitalization, Other)
  Sender: FDA-Public Use
  Company Number: AR-ABBVIE-18K-007-2544194-00

PATIENT
  Age: 48 Year
  Sex: Male

DRUGS (1)
  1. HUMIRA [Suspect]
     Active Substance: ADALIMUMAB
     Indication: PSORIASIS
     Route: 058
     Dates: start: 20180323

REACTIONS (3)
  - Deafness unilateral [Not Recovered/Not Resolved]
  - Osteomyelitis [Unknown]
  - Deafness unilateral [Unknown]

NARRATIVE: CASE EVENT DATE: 2018
